FAERS Safety Report 8904244 (Version 3)
Quarter: 2012Q4

REPORT INFORMATION
  Report Type: 
  Country: US (occurrence: US)
  Receive Date: 20121112
  Receipt Date: 20121130
  Transmission Date: 20130627
  Serious: No
  Sender: FDA-Public Use
  Company Number: US-ASTRAZENECA-2012SE82042

PATIENT
  Age: 54 Year
  Sex: Female

DRUGS (1)
  1. NEXIUM [Suspect]
     Indication: OESOPHAGEAL DISORDER
     Route: 048

REACTIONS (10)
  - Oesophageal ulcer [Unknown]
  - Discomfort [Unknown]
  - Dysphagia [Unknown]
  - Lung infection [Unknown]
  - Emotional distress [Unknown]
  - Gastric ulcer [Unknown]
  - Malaise [Unknown]
  - Abdominal pain upper [Unknown]
  - Vomiting [Unknown]
  - Drug dose omission [Unknown]
